FAERS Safety Report 24589938 (Version 1)
Quarter: 2024Q4

REPORT INFORMATION
  Report Type: Report from Study
  Country: FR (occurrence: FR)
  Receive Date: 20241107
  Receipt Date: 20241107
  Transmission Date: 20250115
  Serious: Yes (Life-Threatening, Hospitalization)
  Sender: MYLAN
  Company Number: FR-002147023-NVSC2024FR038522

PATIENT
  Age: 71 Year
  Sex: Female
  Weight: 57 kg

DRUGS (3)
  1. OXALIPLATIN [Suspect]
     Active Substance: OXALIPLATIN
     Indication: Gastric cancer
     Dosage: 85 MG, CYCLE (PER SQUARE METRE PER EVERY DAY 1 AND DAY 15 CYCLE OF 4 WEEK IN PREOPERATIVE PERIOD)
     Route: 042
     Dates: start: 20220810, end: 20220906
  2. OXALIPLATIN [Suspect]
     Active Substance: OXALIPLATIN
     Dosage: 65 MG, CYCLE (PER SQUARE METRE PER EVERY DAY 1 + DAY 15 OF CYCLE OF 4 WEEK IN PREOPERATIVE PERIOD)
     Route: 065
     Dates: start: 20220907
  3. OXALIPLATIN [Suspect]
     Active Substance: OXALIPLATIN
     Dosage: 65 MILLIGRAM
     Route: 042
     Dates: start: 20230222

REACTIONS (4)
  - Anaphylactic shock [Recovered/Resolved]
  - Pulmonary embolism [Not Recovered/Not Resolved]
  - Pneumonia [Recovered/Resolved]
  - COVID-19 [Recovered/Resolved]

NARRATIVE: CASE EVENT DATE: 20221116
